FAERS Safety Report 5124783-0 (Version None)
Quarter: 2006Q4

REPORT INFORMATION
  Report Type: 
  Country: None (occurrence: None)
  Receive Date: 20061011
  Receipt Date: 20060605
  Transmission Date: 20070319
  Serious: Yes (Hospitalization)
  Sender: FDA-Public Use
  Company Number: US-ROCHE-450649

PATIENT
  Age: 73 Year
  Sex: Male
  Weight: 61.7 kg

DRUGS (11)
  1. CAPECITABINE [Suspect]
     Dosage: DOSAGE FORM REPORED AS MG/M2. GIVEN ON DAYS ONE TO EIGHT (FIRST DOSE IN THE EVENING OF DAY ONE) OF +
     Route: 048
     Dates: start: 20060518
  2. CAPECITABINE [Suspect]
     Route: 048
     Dates: start: 20060622
  3. BEVACIZUMAB [Suspect]
     Dosage: DOSAGE FORM REPORED AS MG/M2. GIVEN ON DAY ONE OF EACH 2-WEEK-CYCLE.
     Route: 042
     Dates: start: 20060518
  4. BEVACIZUMAB [Suspect]
     Route: 042
     Dates: start: 20060622
  5. OXALIPLATIN [Suspect]
     Dosage: DOSAGE FORM REPORED AS MG/M2. GIVEN ON DAY ONE OF EACH 2-WEEK-CYCLE.
     Route: 042
     Dates: start: 20060518
  6. OXALIPLATIN [Suspect]
     Route: 042
     Dates: start: 20060622
  7. NEXIUM [Concomitant]
     Dates: start: 20040615
  8. ZOLOFT [Concomitant]
     Dates: start: 20050615
  9. IRON SULFATETHIAMIN COMPOUND TAB [Concomitant]
     Dates: start: 20060512
  10. MEGACE [Concomitant]
     Dates: start: 20060512
  11. IMODIUM [Concomitant]
     Dates: start: 20060510

REACTIONS (1)
  - MUCOSAL INFLAMMATION [None]
